FAERS Safety Report 14190744 (Version 2)
Quarter: 2017Q4

REPORT INFORMATION
  Report Type: Spontaneous
  Country: IT (occurrence: IT)
  Receive Date: 20171115
  Receipt Date: 20171206
  Transmission Date: 20180321
  Serious: Yes (Hospitalization)
  Sender: FDA-Public Use
  Company Number: US-ASTRAZENECA-2017SF15686

PATIENT
  Age: 83 Year
  Sex: Female

DRUGS (11)
  1. BLOPRESID [Suspect]
     Active Substance: CANDESARTAN CILEXETIL\HYDROCHLOROTHIAZIDE
     Indication: HYPERTENSION
     Dosage: 32/12.5 MG, EVERY DAY
     Route: 048
     Dates: end: 20170201
  2. GLUCOPHAGE [Concomitant]
     Active Substance: METFORMIN HYDROCHLORIDE
  3. TRITTICO [Concomitant]
     Active Substance: TRAZODONE HYDROCHLORIDE
     Dosage: 200.0MG UNKNOWN
     Route: 048
  4. TIMOLOL. [Concomitant]
     Active Substance: TIMOLOL
     Dosage: UNK
  5. ALLOPURINOL. [Concomitant]
     Active Substance: ALLOPURINOL
     Dosage: UNK
  6. CARDIRENE [Concomitant]
     Active Substance: ASPIRIN DL-LYSINE
     Dosage: UNK
  7. DILATREND [Concomitant]
     Active Substance: CARVEDILOL
     Dosage: UNK
  8. HALCION [Concomitant]
     Active Substance: TRIAZOLAM
     Dosage: UNK
  9. MACROGOL [Concomitant]
     Active Substance: POLYETHYLENE GLYCOLS
     Dosage: UNK
  10. ESILGAN [Concomitant]
     Active Substance: ESTAZOLAM
     Dosage: UNK
  11. TOTALIP [Concomitant]
     Active Substance: ATORVASTATIN
     Dosage: UNK

REACTIONS (5)
  - Vomiting [Unknown]
  - Hyponatraemia [Unknown]
  - Tremor [Unknown]
  - Polydipsia [Unknown]
  - Seizure [Unknown]

NARRATIVE: CASE EVENT DATE: 20170201
